FAERS Safety Report 5684514-2 (Version None)
Quarter: 2008Q1

REPORT INFORMATION
  Report Type: 
  Country: None (occurrence: None)
  Receive Date: 20080328
  Receipt Date: 20080317
  Transmission Date: 20080703
  Serious: Yes (Death)
  Sender: FDA-Public Use
  Company Number: FR-ROCHE-554540

PATIENT

DRUGS (3)
  1. ZALCITABINE [Suspect]
     Dosage: GIVEN FROM 14TH DAY AFTER LIVER TRANSPLANT
     Route: 065
  2. RIBAVIRIN [Suspect]
     Indication: HEPATITIS C
     Dosage: FROM MONTH 11-12
     Route: 065
  3. INTRON A [Suspect]
     Indication: HEPATITIS C
     Dosage: FROM MONTH 11-12
     Route: 065

REACTIONS (3)
  - DISEASE RECURRENCE [None]
  - HEPATITIS C [None]
  - MITOCHONDRIAL TOXICITY [None]
